FAERS Safety Report 5231700-1 (Version None)
Quarter: 2007Q1

REPORT INFORMATION
  Report Type: 
  Country: None (occurrence: None)
  Receive Date: 20070206
  Receipt Date: 20070126
  Transmission Date: 20070707
  Serious: Yes (Death, Hospitalization, Other)
  Sender: FDA-Public Use
  Company Number: US-PFIZER INC-2006151948

PATIENT
  Sex: Female

DRUGS (2)
  1. CHANTIX [Suspect]
     Indication: SMOKING CESSATION THERAPY
     Dosage: FREQ:UNKNOWN
     Route: 065
  2. ALL OTHER THERAPEUTIC PRODUCTS [Concomitant]
     Dosage: FREQ:UNKNOWN
     Route: 065

REACTIONS (4)
  - DEATH [None]
  - DYSPNOEA [None]
  - HYPOXIA [None]
  - PNEUMONIA VIRAL [None]
